FAERS Safety Report 6501542-5 (Version None)
Quarter: 2009Q4

REPORT INFORMATION
  Report Type: 
  Country: None (occurrence: None)
  Receive Date: 20091216
  Receipt Date: 20091207
  Transmission Date: 20100525
  Serious: Yes (Hospitalization)
  Sender: FDA-Public Use
  Company Number: B0612146A

PATIENT
  Sex: Male

DRUGS (6)
  1. AVANDAMET [Suspect]
     Route: 048
     Dates: end: 20091004
  2. BACTRIM DS [Suspect]
     Route: 048
     Dates: start: 20090926, end: 20091004
  3. AMAREL [Suspect]
     Dosage: 6MG PER DAY
     Route: 048
     Dates: end: 20091004
  4. TROSPIUM CHLORIDE [Concomitant]
     Dosage: 40MG PER DAY
     Route: 048
     Dates: start: 20090930, end: 20091004
  5. BIPRETERAX [Concomitant]
     Indication: DRUG USE FOR UNKNOWN INDICATION
     Route: 065
  6. LIPANTHYL [Concomitant]
     Indication: DRUG USE FOR UNKNOWN INDICATION
     Route: 065

REACTIONS (3)
  - DRUG INTERACTION [None]
  - HYPOGLYCAEMIA [None]
  - SOMNOLENCE [None]
